FAERS Safety Report 8942498 (Version 1)
Quarter: 2012Q4

REPORT INFORMATION
  Report Type: 
  Country: DE (occurrence: DE)
  Receive Date: 20121204
  Receipt Date: 20121204
  Transmission Date: 20130627
  Serious: Yes (Other)
  Sender: FDA-Public Use
  Company Number: DE-ROXANE LABORATORIES, INC.-2012-RO-02465RO

PATIENT
  Age: 34 Year
  Sex: Female

DRUGS (2)
  1. CYCLOPHOSPHAMIDE TABLETS USP [Suspect]
     Indication: BREAST CANCER
  2. DOCETAXEL [Suspect]
     Indication: BREAST CANCER

REACTIONS (5)
  - Pre-eclampsia [Unknown]
  - HELLP syndrome [Unknown]
  - Placental insufficiency [Unknown]
  - Foetal growth restriction [Unknown]
  - Oligohydramnios [Unknown]
